FAERS Safety Report 16659057 (Version 1)
Quarter: 2019Q3

REPORT INFORMATION
  Report Type: Report from Study
  Country: None (occurrence: CA)
  Receive Date: 20190801
  Receipt Date: 20190801
  Transmission Date: 20191004
  Serious: Yes (Other)
  Sender: FDA-Public Use
  Company Number: CA-ABBVIE-18K-028-2544187-00

PATIENT
  Sex: Male

DRUGS (1)
  1. HUMIRA [Suspect]
     Active Substance: ADALIMUMAB
     Indication: CROHN^S DISEASE
     Route: 058
     Dates: start: 20081130, end: 20181025

REACTIONS (6)
  - Abscess [Not Recovered/Not Resolved]
  - Abscess [Recovering/Resolving]
  - Fistula discharge [Not Recovered/Not Resolved]
  - Rectal lesion [Not Recovered/Not Resolved]
  - Dry skin [Not Recovered/Not Resolved]
  - Fistula [Recovering/Resolving]

NARRATIVE: CASE EVENT DATE: 2018
